FAERS Safety Report 5541408-0 (Version None)
Quarter: 2007Q4

REPORT INFORMATION
  Report Type: 
  Country: None (occurrence: None)
  Receive Date: 20071209
  Receipt Date: 20061213
  Transmission Date: 20080405
  Serious: No
  Sender: FDA-Public Use
  Company Number: US-AMGEN-KDL203644

PATIENT
  Sex: Female

DRUGS (2)
  1. ENBREL [Suspect]
     Indication: RHEUMATOID ARTHRITIS
     Route: 058
     Dates: start: 20060915
  2. SULFASALAZINE [Concomitant]
     Dates: start: 20040101

REACTIONS (3)
  - CHEILITIS [None]
  - LOCALISED INFECTION [None]
  - RASH [None]
